FAERS Safety Report 20514583 (Version 1)
Quarter: 2022Q1

REPORT INFORMATION
  Report Type: Spontaneous
  Country: NO (occurrence: NO)
  Receive Date: 20220224
  Receipt Date: 20220224
  Transmission Date: 20220423
  Serious: Yes (Hospitalization, Other)
  Sender: FDA-Public Use
  Company Number: None

PATIENT
  Age: 46 Year
  Sex: Male

DRUGS (6)
  1. TRIAMCINOLONE ACETONIDE [Suspect]
     Active Substance: TRIAMCINOLONE ACETONIDE
     Indication: Rotator cuff syndrome
     Dosage: 40 MILLIGRAM, 1 TOTAL, BY SUBACROMIAL INJECTION, TOGETHER WITH 7 ML MARCAIN. LEFT SHOULDER
     Route: 014
     Dates: start: 20211230, end: 20211230
  2. BUPIVACAINE HYDROCHLORIDE [Concomitant]
     Active Substance: BUPIVACAINE HYDROCHLORIDE
     Indication: Local anaesthesia
     Dosage: TOGETHER WITH KENACORT-T INJECTION, 7 ML GIVEN, BUT UNIT DOSE NOT SPECIFIED.
     Route: 065
     Dates: start: 20211230, end: 20211230
  3. ARCOXIA [Concomitant]
     Active Substance: ETORICOXIB
     Indication: Back pain
     Dosage: 90 MILLIGRAM, QD
     Route: 048
     Dates: start: 20211229, end: 20220106
  4. ARCOXIA [Concomitant]
     Active Substance: ETORICOXIB
     Indication: Arthralgia
  5. NEBIDO [TESTOSTERONE] [Concomitant]
     Indication: Androgen deficiency
     Dosage: 1000 MILLIGRAM
     Route: 030
     Dates: end: 202106
  6. METHADONE HYDROCHLORIDE [Concomitant]
     Active Substance: METHADONE HYDROCHLORIDE
     Indication: Drug rehabilitation
     Dosage: 130 MILLIGRAM, QD
     Route: 048

REACTIONS (3)
  - Diplegia [Recovered/Resolved]
  - Monoplegia [Recovered/Resolved]
  - Hypokalaemia [Recovered/Resolved]

NARRATIVE: CASE EVENT DATE: 20211231
